FAERS Safety Report 8908898 (Version 1)
Quarter: 2012Q4

REPORT INFORMATION
  Report Type: 
  Country: US (occurrence: US)
  Receive Date: 20121114
  Receipt Date: 20121114
  Transmission Date: 20130627
  Serious: Yes (Other)
  Sender: FDA-Public Use
  Company Number: US-PFIZER INC-2012283421

PATIENT
  Age: 71 Year
  Sex: Male
  Weight: 113.38 kg

DRUGS (3)
  1. LYRICA [Suspect]
     Indication: PAIN
     Dosage: 75 mg, 2x/day
     Route: 048
     Dates: start: 20120731, end: 20120831
  2. LYRICA [Suspect]
     Dosage: 75 mg, 2x/day
     Route: 048
     Dates: start: 20121112
  3. VICODIN ES [Concomitant]
     Dosage: UNK
     Route: 048

REACTIONS (9)
  - Diabetes mellitus inadequate control [Unknown]
  - Hypertension [Unknown]
  - Hallucination [Unknown]
  - Dizziness [Unknown]
  - Nausea [Unknown]
  - Impaired work ability [Unknown]
  - Insomnia [Unknown]
  - Drug ineffective [Unknown]
  - Depression [Unknown]
